FAERS Safety Report 23889178 (Version 5)
Quarter: 2025Q3

REPORT INFORMATION
  Report Type: Spontaneous
  Country: AU (occurrence: AU)
  Receive Date: 20240523
  Receipt Date: 20250803
  Transmission Date: 20251020
  Serious: Yes (Life-Threatening, Hospitalization, Other)
  Sender: ALEXION PHARMACEUTICALS
  Company Number: 2024A119930

PATIENT
  Age: 56 Year
  Sex: Female

DRUGS (27)
  1. ESOMEPRAZOLE [Suspect]
     Active Substance: ESOMEPRAZOLE
     Indication: Product used for unknown indication
     Dosage: 40 MILLIGRAM, QD
     Route: 065
  2. ROSUVASTATIN CALCIUM [Suspect]
     Active Substance: ROSUVASTATIN CALCIUM
     Indication: Product used for unknown indication
     Route: 065
  3. ROSUVASTATIN CALCIUM [Suspect]
     Active Substance: ROSUVASTATIN CALCIUM
  4. ANASTROZOLE [Suspect]
     Active Substance: ANASTROZOLE
     Indication: Breast cancer
     Dosage: IN MORNING
  5. ANASTROZOLE [Suspect]
     Active Substance: ANASTROZOLE
     Dosage: IN MORNING
  6. APIXABAN [Suspect]
     Active Substance: APIXABAN
     Indication: Product used for unknown indication
     Route: 065
  7. APIXABAN [Suspect]
     Active Substance: APIXABAN
  8. NOVORAPID [Suspect]
     Active Substance: INSULIN ASPART
     Indication: Product used for unknown indication
     Route: 065
  9. NOVORAPID [Suspect]
     Active Substance: INSULIN ASPART
  10. INSULIN GLARGINE [Suspect]
     Active Substance: INSULIN GLARGINE
     Indication: Product used for unknown indication
     Route: 065
  11. INSULIN GLARGINE [Suspect]
     Active Substance: INSULIN GLARGINE
  12. PHENERGAN [Suspect]
     Active Substance: PROMETHAZINE HYDROCHLORIDE
     Indication: Local reaction
     Route: 065
  13. FAMOTIDINE [Suspect]
     Active Substance: FAMOTIDINE
     Indication: Mast cell activation syndrome
     Route: 065
  14. FAMOTIDINE [Suspect]
     Active Substance: FAMOTIDINE
  15. LORATADINE [Suspect]
     Active Substance: LORATADINE
     Indication: Mast cell activation syndrome
     Route: 065
  16. LORATADINE [Suspect]
     Active Substance: LORATADINE
  17. LORATADINE [Suspect]
     Active Substance: LORATADINE
  18. DAPAGLIFLOZIN PROPANEDIOL\METFORMIN HYDROCHLORIDE [Suspect]
     Active Substance: DAPAGLIFLOZIN PROPANEDIOL\METFORMIN HYDROCHLORIDE
     Indication: Diabetes mellitus
     Route: 065
  19. DAPAGLIFLOZIN PROPANEDIOL\METFORMIN HYDROCHLORIDE [Suspect]
     Active Substance: DAPAGLIFLOZIN PROPANEDIOL\METFORMIN HYDROCHLORIDE
  20. MONTELUKAST [Suspect]
     Active Substance: MONTELUKAST
     Indication: Mast cell activation syndrome
     Route: 065
  21. MONTELUKAST [Suspect]
     Active Substance: MONTELUKAST
  22. ALBUTEROL SULFATE [Suspect]
     Active Substance: ALBUTEROL SULFATE
     Indication: Product used for unknown indication
     Route: 065
  23. ALBUTEROL SULFATE [Suspect]
     Active Substance: ALBUTEROL SULFATE
  24. PFIZER-BIONTECH COVID-19 VACCINE [Suspect]
     Active Substance: TOZINAMERAN
     Indication: COVID-19 immunisation
     Route: 065
  25. PFIZER-BIONTECH COVID-19 VACCINE [Suspect]
     Active Substance: TOZINAMERAN
     Indication: COVID-19 immunisation
  26. PFIZER-BIONTECH COVID-19 VACCINE [Suspect]
     Active Substance: TOZINAMERAN
  27. METFORMIN HYDROCHLORIDE [Suspect]
     Active Substance: METFORMIN HYDROCHLORIDE

REACTIONS (15)
  - Upper respiratory tract infection [Unknown]
  - Respiratory failure [Recovering/Resolving]
  - Pneumonia [Unknown]
  - Anaphylactic reaction [Recovering/Resolving]
  - Pneumonia haemophilus [Unknown]
  - Pneumonia [Unknown]
  - Mouth haemorrhage [Unknown]
  - COVID-19 [Unknown]
  - Tongue biting [Unknown]
  - Human rhinovirus test positive [Unknown]
  - Respiratory syncytial virus test positive [Unknown]
  - Respiratory failure [Unknown]
  - Tongue injury [Unknown]
  - Viral test positive [Unknown]
  - Respiratory syncytial virus test positive [Unknown]

NARRATIVE: CASE EVENT DATE: 20180718
